FAERS Safety Report 5594529-0 (Version None)
Quarter: 2008Q1

REPORT INFORMATION
  Report Type: 
  Country: None (occurrence: None)
  Receive Date: 20080117
  Receipt Date: 20080107
  Transmission Date: 20080703
  Serious: Yes (Other)
  Sender: FDA-Public Use
  Company Number: NL-JNJFOC-20080101314

PATIENT
  Age: 2 Year
  Sex: Male

DRUGS (1)
  1. RISPERDAL [Suspect]
     Indication: ACCIDENTAL EXPOSURE

REACTIONS (2)
  - ACCIDENTAL EXPOSURE [None]
  - FEELING ABNORMAL [None]
